FAERS Safety Report 8587017-0 (Version None)
Quarter: 2012Q3

REPORT INFORMATION
  Report Type: 
  Country: None (occurrence: None)
  Receive Date: 20120810
  Receipt Date: 20080430
  Transmission Date: 20120928
  Serious: Yes (Other)
  Sender: FDA-Public Use
  Company Number: CO-PFIZER INC-2012194376

PATIENT
  Age: 72 Year
  Sex: Female

DRUGS (5)
  1. METFORMIN [Concomitant]
     Dosage: 850 MG, 1X/DAY
     Route: 065
  2. ASPIRIN [Concomitant]
     Dosage: 100 MG, 1X/DAY
     Route: 065
  3. GLIBENCLAMIDE [Concomitant]
     Dosage: 5 MG, 2X/DAY
     Route: 065
  4. OLMESARTAN MEDOXOMIL AND HYDROCHLOROTHIZIDE [Suspect]
     Dosage: 20/12.5MG, 1X/DAY
     Route: 065
  5. LIPITOR [Suspect]
     Dosage: 10 MG, 1X/DAY
     Route: 065

REACTIONS (3)
  - DRUG INEFFECTIVE [None]
  - ANGIOPATHY [None]
  - HEADACHE [None]
